FAERS Safety Report 5334618-9 (Version None)
Quarter: 2007Q2

REPORT INFORMATION
  Report Type: 
  Country: None (occurrence: None)
  Receive Date: 20070525
  Receipt Date: 20070522
  Transmission Date: 20071010
  Serious: Yes (Hospitalization)
  Sender: FDA-Public Use
  Company Number: A0642592A

PATIENT
  Age: 69 Year
  Sex: Female
  Weight: 77.7 kg

DRUGS (8)
  1. ADVAIR DISKUS 100/50 [Suspect]
     Indication: ASTHMA
     Dosage: 1PUFF VARIABLE DOSE
     Route: 055
     Dates: start: 20020101
  2. WELCHOL [Suspect]
     Dates: start: 20060101
  3. PREDNISONE TAB [Suspect]
     Indication: ASTHMA
     Dates: start: 20060101
  4. ALLERGY SHOTS [Concomitant]
  5. PRILOSEC [Concomitant]
  6. COUMADIN [Concomitant]
  7. ACTONEL [Concomitant]
  8. CALCIUM + VITAMIN D [Concomitant]

REACTIONS (19)
  - ASTHMA [None]
  - CATARACT [None]
  - CONJUNCTIVAL HAEMORRHAGE [None]
  - DRUG INEFFECTIVE [None]
  - EYE PAIN [None]
  - GLAUCOMATOUS OPTIC DISC ATROPHY [None]
  - HEADACHE [None]
  - INTRAOCULAR PRESSURE INCREASED [None]
  - IRITIS [None]
  - KERATOCONJUNCTIVITIS SICCA [None]
  - OCULAR HYPERTENSION [None]
  - OPEN ANGLE GLAUCOMA [None]
  - OPTIC ATROPHY [None]
  - OSTEOPOROSIS [None]
  - SCOTOMA [None]
  - THROMBOSIS [None]
  - URINARY TRACT INFECTION [None]
  - VISION BLURRED [None]
  - VITREOUS FLOATERS [None]
